FAERS Safety Report 10596209 (Version 1)
Quarter: 2014Q4

REPORT INFORMATION
  Report Type: Spontaneous
  Country: US (occurrence: US)
  Receive Date: 20141120
  Receipt Date: 20141120
  Transmission Date: 20150529
  Serious: Yes (Hospitalization, Other)
  Sender: FDA-Public Use
  Company Number: US-GLAXOSMITHKLINE-US2014GSK024411

PATIENT
  Sex: Female

DRUGS (9)
  1. FLONASE [Concomitant]
     Active Substance: FLUTICASONE PROPIONATE
  2. DILTIAZEM [Concomitant]
     Active Substance: DILTIAZEM
  3. ALBUTEROL + IPRATROPIUM [Concomitant]
  4. VENTOLIN HFA [Suspect]
     Active Substance: ALBUTEROL SULFATE
     Indication: PRODUCT USED FOR UNKNOWN INDICATION
     Dosage: UNK, PRN
     Dates: start: 2002
  5. HYDROCHLOROTHIAZIDE + TRIAMTERENE [Concomitant]
     Active Substance: HYDROCHLOROTHIAZIDE\TRIAMTERENE
  6. LOSARTAN [Concomitant]
     Active Substance: LOSARTAN
  7. SINUS MEDICATION [Concomitant]
     Active Substance: UNSPECIFIED INGREDIENT
  8. ADVAIR DISKUS [Suspect]
     Active Substance: FLUTICASONE PROPIONATE\SALMETEROL XINAFOATE
     Indication: CHRONIC OBSTRUCTIVE PULMONARY DISEASE
     Dosage: 1 PUFF(S), BID
     Dates: start: 2004
  9. SINGULAIR [Concomitant]
     Active Substance: MONTELUKAST SODIUM

REACTIONS (5)
  - Pneumonia [Recovering/Resolving]
  - Asthenia [Not Recovered/Not Resolved]
  - Secretion discharge [Recovering/Resolving]
  - Cough [Recovering/Resolving]
  - Lung disorder [Not Recovered/Not Resolved]
